FAERS Safety Report 18630199 (Version 2)
Quarter: 2021Q1

REPORT INFORMATION
  Report Type: Spontaneous
  Country: US (occurrence: US)
  Receive Date: 20201217
  Receipt Date: 20210120
  Transmission Date: 20210419
  Serious: No
  Sender: FDA-Public Use
  Company Number: US-VERTEX PHARMACEUTICALS-2020-024541

PATIENT
  Sex: Female
  Weight: 51 kg

DRUGS (25)
  1. CREON [Concomitant]
     Active Substance: PANCRELIPASE AMYLASE\PANCRELIPASE LIPASE\PANCRELIPASE PROTEASE
     Indication: PANCREATIC FAILURE
     Dosage: 3 CAPSULES WITH MEALS 2 WITH SNACKS AND 3 WITH NIGHT TIME FEEDS
  2. VORICONAZOLE. [Concomitant]
     Active Substance: VORICONAZOLE
     Indication: ASPERGILLUS INFECTION
  3. PROAIR HFA [Concomitant]
     Active Substance: ALBUTEROL SULFATE
     Dosage: 2 PUFFSEVERY 4 HOURS
  4. PULMOZYME [Concomitant]
     Active Substance: DORNASE ALFA
  5. QVAR REDIHALER [Concomitant]
     Active Substance: BECLOMETHASONE DIPROPIONATE
     Dosage: 2 PUFFS TWICE A DAY
  6. SODIUM CHLORIDE. [Concomitant]
     Active Substance: SODIUM CHLORIDE
  7. ISONIAZID. [Concomitant]
     Active Substance: ISONIAZID
     Route: 048
  8. TRIKAFTA [Suspect]
     Active Substance: ELEXACAFTOR\IVACAFTOR\TEZACAFTOR
     Indication: CYSTIC FIBROSIS
     Dosage: REDUCED DOSE, 2X/WEEK
     Route: 048
     Dates: start: 20191201
  9. TRIKAFTA [Suspect]
     Active Substance: ELEXACAFTOR\IVACAFTOR\TEZACAFTOR
     Dosage: UNK
     Route: 048
  10. ALBUTEROL SULFATE. [Concomitant]
     Active Substance: ALBUTEROL SULFATE
     Indication: CYSTIC FIBROSIS
  11. TETRACYCLIN [Concomitant]
     Indication: ACHROMOBACTER INFECTION
     Dosage: 1 CAPSULE 3 TIMES A DAY
     Route: 048
  12. LANSOPRAZOLE. [Concomitant]
     Active Substance: LANSOPRAZOLE
     Route: 048
  13. TRIKAFTA [Suspect]
     Active Substance: ELEXACAFTOR\IVACAFTOR\TEZACAFTOR
     Dosage: REDUCED DOSE, 2X/WEEK
     Route: 048
  14. FLONASE ALLERGY RELIEF [Concomitant]
     Active Substance: FLUTICASONE PROPIONATE
     Dosage: 1 SPRAY IN EACH NOSTRIL
     Route: 045
  15. ZOSYN [Concomitant]
     Active Substance: PIPERACILLIN SODIUM\TAZOBACTAM SODIUM
  16. PYRAZINAMIDE. [Concomitant]
     Active Substance: PYRAZINAMIDE
     Route: 048
  17. CYPROHEPTADINE. [Concomitant]
     Active Substance: CYPROHEPTADINE
     Indication: ASPERGILLUS INFECTION
  18. HEPARIN [HEPARIN SODIUM] [Concomitant]
  19. AMIKACIN. [Concomitant]
     Active Substance: AMIKACIN
     Indication: ACHROMOBACTER INFECTION
  20. CEFTAZIDIME. [Concomitant]
     Active Substance: CEFTAZIDIME
     Indication: ACHROMOBACTER INFECTION
  21. EPINEPHRINE. [Concomitant]
     Active Substance: EPINEPHRINE
  22. SODIUM BICARBONATE. [Concomitant]
     Active Substance: SODIUM BICARBONATE
     Indication: CYSTIC FIBROSIS
     Dosage: UNK, BID
     Route: 042
  23. HEPRIN [HEPARIN SODIUM] [Concomitant]
     Dosage: 10 UNITS PER ML
  24. MOXIFLOXACIN. [Concomitant]
     Active Substance: MOXIFLOXACIN
     Indication: TUBERCULOSIS
     Route: 065
  25. ETHAMBUTOL [Concomitant]
     Active Substance: ETHAMBUTOL HYDROCHLORIDE
     Route: 048

REACTIONS (6)
  - Pulmonary function test decreased [Unknown]
  - Cough [Unknown]
  - Chest discomfort [Unknown]
  - Productive cough [Recovered/Resolved]
  - Infective pulmonary exacerbation of cystic fibrosis [Unknown]
  - Appetite disorder [Unknown]

NARRATIVE: CASE EVENT DATE: 2020
